FAERS Safety Report 9444823 (Version 2)
Quarter: 2013Q3

REPORT INFORMATION
  Report Type: Spontaneous
  Country: US (occurrence: None)
  Receive Date: 20130802
  Receipt Date: 20130813
  Transmission Date: 20140515
  Serious: Yes (Hospitalization)
  Sender: FDA-Public Use
  Company Number: 2013-1227

PATIENT
  Age: 73 Year
  Sex: Female
  Weight: 53.07 kg

DRUGS (19)
  1. KYPROLIS [Suspect]
     Indication: PRODUCT USED FOR UNKNOWN INDICATION
  2. PRANDIN [Concomitant]
  3. ZOMETA (ZOLEDRONIC ACID) [Concomitant]
  4. ATIVAN (LORAZEPAM) [Concomitant]
  5. FLORASTOR (SACCHAROMYCES BOULARDII) [Concomitant]
  6. NEXIUM (ESOMEPRAZOLE MAGNESIUM) [Concomitant]
  7. SYMBICORT (FORMOTEROL FUMARATE, BUDESONIDE) [Concomitant]
  8. LOMOTIL (ATROPINE SULFATE, DIPHENOXYLATE HYDROCHLORIDE) [Concomitant]
  9. VALTREX (VALACICLOVIR HYDROCHLORIDE) [Concomitant]
  10. IMMUNOGLOBULIN [Concomitant]
  11. ERGOCALCIFEROL (ERGOCALCIFEROL) [Concomitant]
  12. REVLIMID (LENALIDOMIDE) [Concomitant]
  13. VELCADE (BORTEZOMIB) [Concomitant]
  14. DEXAMETHASONE (DEXAMETHASONE) [Concomitant]
  15. BENAZEPRIL (BENAZEPRIL) [Concomitant]
  16. AMLODIPINE (AMLODIPINE) [Concomitant]
  17. BIAXIN (CLARITHROMYCIN) [Concomitant]
  18. POTASSIUM CHLORIDE (POTASSIUM CHLORIDE) [Concomitant]
  19. METOPROLOL SUCCINATE (METOPROLOL SUCCINATE) [Concomitant]

REACTIONS (8)
  - Cardiac failure congestive [None]
  - Cardiomyopathy [None]
  - Ventricular tachycardia [None]
  - Cardiotoxicity [None]
  - Cardiomegaly [None]
  - Atelectasis [None]
  - Hiatus hernia [None]
  - Renal failure acute [None]
